FAERS Safety Report 9391345 (Version 2)
Quarter: 2013Q3

REPORT INFORMATION
  Report Type: Spontaneous
  Country: US (occurrence: US)
  Receive Date: 20130709
  Receipt Date: 20130828
  Transmission Date: 20140515
  Serious: Yes (Hospitalization, Other)
  Sender: FDA-Public Use
  Company Number: US-PFIZER INC-2013201976

PATIENT
  Age: 63 Year
  Sex: Female
  Weight: 44.63 kg

DRUGS (2)
  1. LYRICA [Suspect]
     Indication: FIBROMYALGIA
     Dosage: 75 MG, 3X/DAY
     Route: 048
  2. ACETAMINOPHEN W/OXYCODONE [Concomitant]
     Dosage: 325/10 MG, 3X/DAY

REACTIONS (6)
  - Gastrointestinal disorder [Unknown]
  - Weight decreased [Unknown]
  - Limb discomfort [Unknown]
  - Back disorder [Unknown]
  - Impaired work ability [Unknown]
  - Dysstasia [Unknown]
